FAERS Safety Report 9958682 (Version 1)
Quarter: 2014Q1

REPORT INFORMATION
  Report Type: Spontaneous
  Country: US (occurrence: None)
  Receive Date: 20140228
  Receipt Date: 20140228
  Transmission Date: 20141002
  Serious: Yes (Death)
  Sender: FDA-Public Use
  Company Number: None

PATIENT
  Sex: Female

DRUGS (2)
  1. TEMOZOLOMIDE 20 MG TEVA USA [Suspect]
     Indication: BRAIN NEOPLASM MALIGNANT
     Dosage: 3 CAPS DAILY PO
     Route: 048
     Dates: start: 20131218, end: 20140227
  2. TEMOZOLOMIDE 100 MG TEVA USA [Suspect]
     Indication: BRAIN NEOPLASM MALIGNANT
     Dosage: 1 CAPS DAILY PO
     Route: 048
     Dates: start: 20131218, end: 20140227

REACTIONS (2)
  - Disease progression [None]
  - Unevaluable event [None]
